FAERS Safety Report 5112882-9 (Version None)
Quarter: 2006Q3

REPORT INFORMATION
  Report Type: 
  Country: None (occurrence: None)
  Receive Date: 20060921
  Receipt Date: 20060921
  Transmission Date: 20061208
  Serious: Yes (Hospitalization)
  Sender: FDA-Public Use
  Company Number: None

PATIENT
  Sex: Male

DRUGS (9)
  1. TERAZOSIN HCL [Suspect]
     Indication: BENIGN PROSTATIC HYPERPLASIA
     Dosage: 5 MG BID PO
     Route: 048
     Dates: start: 20050428, end: 20060706
  2. ATENOLOL [Concomitant]
  3. FUROSEMIDE [Concomitant]
  4. OMEPRAZOLE [Concomitant]
  5. FLUNISOLIDE [Concomitant]
  6. IPRATROPIUM BROMIDE [Concomitant]
  7. BUPROPION HCL [Concomitant]
  8. MULTI-VITAMIN [Concomitant]
  9. ALLOPURINOL [Concomitant]

REACTIONS (2)
  - HYPOTENSION [None]
  - LOSS OF CONSCIOUSNESS [None]
